FAERS Safety Report 11588641 (Version 1)
Quarter: 2015Q4

REPORT INFORMATION
  Report Type: Spontaneous
  Country: US (occurrence: None)
  Receive Date: 20151001
  Receipt Date: 20151001
  Transmission Date: 20160304
  Serious: Yes (Life-Threatening, Disabling, Other)
  Sender: FDA-Public Use
  Company Number: None

PATIENT
  Age: 66 Year
  Sex: Female
  Weight: 64.82 kg

DRUGS (16)
  1. CAYENNE PEPPER [Concomitant]
     Active Substance: CAPSICUM
  2. CUR CUMIN [Concomitant]
  3. VIT.D [Concomitant]
  4. VITAMIN E [Concomitant]
     Active Substance: .ALPHA.-TOCOPHEROL
  5. POTASSIUM GLUCONATE [Concomitant]
     Active Substance: POTASSIUM GLUCONATE
  6. CHROMIUM PICOLINATE [Concomitant]
     Active Substance: CHROMIUM PICOLINATE
  7. CA/MG/ZN [Concomitant]
  8. APIDRA [Suspect]
     Active Substance: INSULIN GLULISINE
     Indication: BLOOD GLUCOSE INCREASED
  9. MULTIPLE VITAMINS [Concomitant]
     Active Substance: VITAMINS
  10. COQ10 [Concomitant]
     Active Substance: UBIDECARENONE
  11. GARLIC. [Concomitant]
     Active Substance: GARLIC
  12. ASCENCIA CONTOUR [Concomitant]
  13. LEVOTHYROXIN [Concomitant]
     Active Substance: LEVOTHYROXINE
  14. FISH OIL [Concomitant]
     Active Substance: FISH OIL
  15. LANTUS [Suspect]
     Active Substance: INSULIN GLARGINE
     Indication: TYPE 1 DIABETES MELLITUS
     Dosage: 12 UNITS-AM 5 UNITS-PM
     Route: 058
     Dates: start: 20150903
  16. NUTHAY HERB [Concomitant]

REACTIONS (4)
  - Fall [None]
  - Multiple injuries [None]
  - Drug resistance [None]
  - Blood glucose increased [None]

NARRATIVE: CASE EVENT DATE: 20150903
